FAERS Safety Report 11998280 (Version 2)
Quarter: 2017Q1

REPORT INFORMATION
  Report Type: Spontaneous
  Country: DK (occurrence: DK)
  Receive Date: 20160203
  Receipt Date: 20170323
  Transmission Date: 20170428
  Serious: Yes (Other)
  Sender: FDA-Public Use
  Company Number: DK-AMGEN-DNKSP2016010606

PATIENT
  Age: 52 Year
  Sex: Female
  Weight: 64 kg

DRUGS (5)
  1. ZOMETA [Suspect]
     Active Substance: ZOLEDRONIC ACID
     Indication: BREAST CANCER
     Dosage: 4 MG.
     Route: 042
     Dates: start: 20140210, end: 20151001
  2. XGEVA [Suspect]
     Active Substance: DENOSUMAB
     Indication: BREAST CANCER
  3. XGEVA [Suspect]
     Active Substance: DENOSUMAB
     Indication: METASTASES TO BONE
     Dosage: 120 MG
     Route: 058
     Dates: start: 20131022, end: 20151001
  4. ZOMETA [Suspect]
     Active Substance: ZOLEDRONIC ACID
     Indication: METASTASES TO BONE
     Dosage: : 4 MG.
     Route: 042
     Dates: start: 20100204, end: 20131022
  5. ZOMETA [Suspect]
     Active Substance: ZOLEDRONIC ACID
     Indication: METASTASES TO BONE

REACTIONS (4)
  - Exposed bone in jaw [Recovered/Resolved]
  - Sequestrectomy [Recovered/Resolved]
  - Osteonecrosis of jaw [Recovered/Resolved]
  - Pain [Unknown]

NARRATIVE: CASE EVENT DATE: 20151001
